FAERS Safety Report 11690456 (Version 11)
Quarter: 2021Q2

REPORT INFORMATION
  Report Type: Spontaneous
  Country: US (occurrence: US)
  Receive Date: 20151102
  Receipt Date: 20210518
  Transmission Date: 20210716
  Serious: Yes (Hospitalization, Other)
  Sender: FDA-Public Use
  Company Number: US-PFIZER INC-2015356839

PATIENT
  Age: 70 Year
  Sex: Female
  Weight: 40.82 kg

DRUGS (26)
  1. FOLIC ACID. [Concomitant]
     Active Substance: FOLIC ACID
     Dosage: 1 MG, 1X/DAY
  2. LIDODERM [Concomitant]
     Active Substance: LIDOCAINE
     Indication: ARTHROPATHY
     Dosage: 700 MG, AS NEEDED
  3. METAMUCIL PLUS CALCIUM [Concomitant]
     Dosage: 2 DF, DAILY
  4. CELEBREX [Concomitant]
     Active Substance: CELECOXIB
     Dosage: 200 MG, 1X/DAY
  5. CARDIOTABS OMEGA 3 [Concomitant]
     Dosage: UNK, 1X/DAY
  6. VIGAMOX [Concomitant]
     Active Substance: MOXIFLOXACIN HYDROCHLORIDE
     Indication: DRY EYE
     Dosage: UNK, AS NEEDED
  7. CARDIOTABS RED YEAST RICE [Concomitant]
     Dosage: 4 DF, DAILY
  8. CARDIOTABS RED YEAST RICE [Concomitant]
     Dosage: UNK, 1X/DAY
  9. XELJANZ [Suspect]
     Active Substance: TOFACITINIB CITRATE
     Indication: RHEUMATOID ARTHRITIS
     Dosage: 5 MG, 2X/DAY
     Route: 048
  10. ASPIRIN. [Concomitant]
     Active Substance: ASPIRIN
     Dosage: 81 MG, 1X/DAY
  11. LEVOTHYROXINE. [Concomitant]
     Active Substance: LEVOTHYROXINE
     Indication: HYPOTHYROIDISM
     Dosage: 75 ?G, 1X/DAY
  12. CARDIOTABS BONE ESSENTIALS [Concomitant]
     Dosage: 4 DF, DAILY
  13. FOSAMAX PLUS D [Concomitant]
     Active Substance: ALENDRONATE SODIUM\CHOLECALCIFEROL
     Dosage: 70 MG, WEEKLY
  14. VALIUM [Concomitant]
     Active Substance: DIAZEPAM
     Dosage: UNK (1/2 TABLET 3X A DAY) AS NEED
  15. XELJANZ [Suspect]
     Active Substance: TOFACITINIB CITRATE
     Indication: OSTEOARTHRITIS
     Dosage: 10 MG, UNK
  16. PREMARIN [Concomitant]
     Active Substance: ESTROGENS, CONJUGATED
     Dosage: 0.3 MG, 1X/DAY
  17. VALIUM [Concomitant]
     Active Substance: DIAZEPAM
     Indication: MENIERE^S DISEASE
     Dosage: 2.5 MG, THREE TIMES DAILY AS NEEDED
     Dates: start: 1978
  18. CARDIOTABS OMEGA 3 [Concomitant]
     Indication: EYE DISORDER
     Dosage: 1000 MG, 2X/DAY
  19. XELJANZ [Suspect]
     Active Substance: TOFACITINIB CITRATE
     Indication: MENIERE^S DISEASE
     Dosage: 5 MG, 2X/DAY
     Route: 048
  20. VITAMIN D [Concomitant]
     Active Substance: VITAMIN D NOS
     Dosage: 1000 IU, 1X/DAY
  21. VITAMIN E [Concomitant]
     Active Substance: .ALPHA.-TOCOPHEROL
     Dosage: 400 IU, 1X/DAY
  22. VITAMIN C [Concomitant]
     Active Substance: ASCORBIC ACID
     Dosage: 500 MG, 1X/DAY
  23. CARDIOTABS BONE ESSENTIALS [Concomitant]
     Dosage: UNK, 2X/DAY
  24. PROVERA [Concomitant]
     Active Substance: MEDROXYPROGESTERONE ACETATE
     Dosage: 2.5 MG, 1X/DAY
  25. MAGNESIUM [Concomitant]
     Active Substance: MAGNESIUM
     Dosage: 250 MG, 1X/DAY
  26. SYSTANE (HYPROMELLOSE 2910 (4000 MPA.S)) [Concomitant]
     Active Substance: HYPROMELLOSE 2910 (4000 MPA.S)
     Indication: DRY EYE
     Dosage: UNK UNK, AS NEEDED (4 BOTTLES A MONTH )

REACTIONS (9)
  - Bone density decreased [Not Recovered/Not Resolved]
  - Road traffic accident [Unknown]
  - Alopecia [Recovered/Resolved]
  - Asthenia [Recovered/Resolved]
  - Weight decreased [Not Recovered/Not Resolved]
  - Blood cholesterol increased [Recovered/Resolved]
  - Weight increased [Recovered/Resolved]
  - Constipation [Recovered/Resolved]
  - Hypoacusis [Unknown]

NARRATIVE: CASE EVENT DATE: 2015
